FAERS Safety Report 17074404 (Version 1)
Quarter: 2019Q4

REPORT INFORMATION
  Report Type: Other
  Country: GB (occurrence: GB)
  Receive Date: 20191126
  Receipt Date: 20191126
  Transmission Date: 20200122
  Serious: Yes (Other)
  Sender: FDA-Public Use
  Company Number: GB-DEXPHARM-20191057

PATIENT
  Age: 63 Year
  Sex: Female

DRUGS (4)
  1. LEVETIRACETAM. [Suspect]
     Active Substance: LEVETIRACETAM
     Dosage: BD
  2. ADCAL D3 [Suspect]
     Active Substance: CALCIUM CARBONATE\CHOLECALCIFEROL
     Dosage: 1 BD
  3. ALENDRONIC ACID [Suspect]
     Active Substance: ALENDRONIC ACID
     Dosage: 70MG ONCE WEEK SAME DAY
  4. FORCEVAL [Suspect]
     Active Substance: FOLIC ACID\IRON\MINERALS\VITAMINS
     Dosage: 1 HR BEFORE MEAL

REACTIONS (13)
  - Pruritus [Unknown]
  - Contusion [Unknown]
  - Gait disturbance [Unknown]
  - Aggression [Unknown]
  - Psychomotor hyperactivity [Unknown]
  - Insomnia [Unknown]
  - Mood swings [Unknown]
  - Drug ineffective [Unknown]
  - Disturbance in attention [Unknown]
  - Eczema [Unknown]
  - Irritability [Unknown]
  - Cognitive disorder [Unknown]
  - Seizure [Unknown]
